FAERS Safety Report 24339667 (Version 1)
Quarter: 2024Q3

REPORT INFORMATION
  Report Type: Spontaneous
  Country: GB (occurrence: GB)
  Receive Date: 20240919
  Receipt Date: 20240919
  Transmission Date: 20241016
  Serious: Yes (Life-Threatening, Hospitalization, Other)
  Sender: DR REDDYS
  Company Number: None

PATIENT
  Age: 74 Year
  Sex: Female

DRUGS (12)
  1. PREGABALIN [Suspect]
     Active Substance: PREGABALIN
     Indication: Back pain
     Dosage: 5 MILLIGRAM, 50 MG, QD (TITRATED UPTO)
  2. PREGABALIN [Suspect]
     Active Substance: PREGABALIN
     Dosage: 24 WEEKS BEFORE ADMISSION, 300MG TWICE DAILY AND CONTINUED FOR OVER THREE YEARS AT 16 WEEKS BEFORE A
  3. PREGABALIN [Suspect]
     Active Substance: PREGABALIN
  4. PREGABALIN [Suspect]
     Active Substance: PREGABALIN
     Dosage: 150MG IN THE DAY TIME AND 100MG LATTER IN THE DAY
  5. PREGABALIN [Suspect]
     Active Substance: PREGABALIN
     Dosage: AT 7 WEEKS BEFORE ADMISSION
  6. PREGABALIN [Suspect]
     Active Substance: PREGABALIN
     Dosage: AT 6 WEEKS BEFORE ADMISSION?50 MILLIGRAM, QD (TITRATED UPTO) (NORTHERN IRELAND)
  7. PREGABALIN [Suspect]
     Active Substance: PREGABALIN
     Dosage: AT 16 WEEKS BEFORE ADMISSION
  8. DULOXETINE [Suspect]
     Active Substance: DULOXETINE
     Indication: Product used for unknown indication
     Dosage: AT 12 WEEKS BEFORE ADMISSION
  9. CANDESARTAN [Concomitant]
     Active Substance: CANDESARTAN
     Indication: Product used for unknown indication
  10. LEVOTHYROXINE [Concomitant]
     Active Substance: LEVOTHYROXINE\LEVOTHYROXINE SODIUM
     Indication: Product used for unknown indication
  11. ACETAMINOPHEN [Concomitant]
     Active Substance: ACETAMINOPHEN
     Indication: Product used for unknown indication
  12. SUMATRIPTAN [Concomitant]
     Active Substance: SUMATRIPTAN\SUMATRIPTAN SUCCINATE
     Indication: Migraine
     Dosage: 50 MG, PRN

REACTIONS (10)
  - Suicidal ideation [Recovering/Resolving]
  - Major depression [Recovering/Resolving]
  - Abnormal behaviour [Recovering/Resolving]
  - Social avoidant behaviour [Recovering/Resolving]
  - Screaming [Recovering/Resolving]
  - Hallucination, visual [Recovering/Resolving]
  - Cognitive disorder [Recovering/Resolving]
  - Withdrawal syndrome [Recovering/Resolving]
  - Hyperhidrosis [Unknown]
  - Nausea [Unknown]
